FAERS Safety Report 6094536-8 (Version None)
Quarter: 2009Q1

REPORT INFORMATION
  Report Type: 
  Country: None (occurrence: None)
  Receive Date: 20090226
  Receipt Date: 20090225
  Transmission Date: 20090719
  Serious: Yes (Other)
  Sender: FDA-Public Use
  Company Number: US-ROXANE LABORATORIES, INC.-2009-DE-01607GD

PATIENT
  Age: 48 Year
  Sex: Female

DRUGS (1)
  1. PREDNISONE [Suspect]
     Indication: ASTHMA

REACTIONS (5)
  - ANGIOEDEMA [None]
  - CONDITION AGGRAVATED [None]
  - PRURITUS [None]
  - TYPE I HYPERSENSITIVITY [None]
  - URTICARIA [None]
